FAERS Safety Report 9693783 (Version 1)
Quarter: 2013Q4

REPORT INFORMATION
  Report Type: Spontaneous
  Country: US (occurrence: US)
  Receive Date: 20131118
  Receipt Date: 20131118
  Transmission Date: 20140711
  Serious: Yes (Other)
  Sender: FDA-Public Use
  Company Number: US-PFIZER INC-2013327150

PATIENT
  Age: 46 Year
  Sex: Female
  Weight: 58.5 kg

DRUGS (1)
  1. ADVIL ALLERGY AND CONGESTION RELIEF [Suspect]
     Indication: PULMONARY CONGESTION
     Dosage: 4/200/10 MG TABLET EVERY FOUR TO SIX HOURS
     Route: 048
     Dates: start: 201311, end: 201311

REACTIONS (2)
  - Anaphylactic shock [Unknown]
  - Drug hypersensitivity [Unknown]
